FAERS Safety Report 4528870-7 (Version None)
Quarter: 2004Q4

REPORT INFORMATION
  Report Type: 
  Country: None (occurrence: None)
  Receive Date: 20041216
  Receipt Date: 20041206
  Transmission Date: 20050328
  Serious: Yes (Hospitalization)
  Sender: FDA-Public Use
  Company Number: CA-JNJFOC-20031204379

PATIENT
  Sex: Female
  Weight: 50 kg

DRUGS (16)
  1. REMICADE [Suspect]
     Route: 042
  2. REMICADE [Suspect]
     Route: 042
  3. REMICADE [Suspect]
     Route: 042
  4. REMICADE [Suspect]
     Route: 042
  5. REMICADE [Suspect]
     Indication: RHEUMATOID ARTHRITIS
     Route: 042
  6. PREDNISONE [Concomitant]
     Route: 049
  7. PREDNISONE [Concomitant]
     Route: 049
  8. PREDNISONE [Concomitant]
     Indication: RHEUMATOID ARTHRITIS
     Route: 049
  9. METHOTREXATE [Concomitant]
     Indication: RHEUMATOID ARTHRITIS
     Route: 049
  10. FOSAMAX [Concomitant]
     Indication: OSTEOPOROSIS
     Route: 049
  11. CARBOCAL D [Concomitant]
  12. CARBOCAL D [Concomitant]
  13. CARBOCAL D [Concomitant]
     Indication: OSTEOPOROSIS
  14. DURICEF [Concomitant]
     Indication: CELLULITIS
     Dosage: 1 GRAM TWICE A DAY
     Route: 049
  15. CALICUM [Concomitant]
     Indication: OSTEOPOROSIS
  16. YOGURT CAPSULES [Concomitant]

REACTIONS (9)
  - ADRENAL DISORDER [None]
  - CELLULITIS [None]
  - CLOSTRIDIAL INFECTION [None]
  - COLITIS [None]
  - HYPOALBUMINAEMIA [None]
  - LOBAR PNEUMONIA [None]
  - LYMPHANGITIS [None]
  - SINUSITIS [None]
  - STREPTOCOCCAL SEPSIS [None]
